FAERS Safety Report 4315879-1 (Version None)
Quarter: 2004Q1

REPORT INFORMATION
  Report Type: 
  Country: None (occurrence: None)
  Receive Date: 20040303
  Receipt Date: 20030507
  Transmission Date: 20041129
  Serious: Yes (Other)
  Sender: FDA-Public Use
  Company Number: 200317494BWH

PATIENT
  Age: 79 Year
  Sex: Female
  Weight: 76 kg

DRUGS (3)
  1. TRASYLOL [Suspect]
     Indication: CORONARY ARTERY SURGERY
     Dosage: 2000000 KIU, INTRAVENOUS
     Route: 042
     Dates: start: 20030404
  2. LOVENOX [Concomitant]
  3. PROTAMINE SULFATE [Concomitant]

REACTIONS (2)
  - PROCEDURAL HYPOTENSION [None]
  - VASCULAR GRAFT OCCLUSION [None]
